FAERS Safety Report 16298341 (Version 2)
Quarter: 2019Q2

REPORT INFORMATION
  Report Type: Spontaneous
  Country: GR (occurrence: GR)
  Receive Date: 20190510
  Receipt Date: 20190514
  Transmission Date: 20190711
  Serious: Yes (Other)
  Sender: FDA-Public Use
  Company Number: GR-PFIZER INC-2019195413

PATIENT
  Age: 81 Year
  Sex: Male

DRUGS (6)
  1. NINTEDANIB [Suspect]
     Active Substance: NINTEDANIB
     Dosage: 200 MG, 2X/DAY (MAINTENANCE)
  2. CARBOPLATIN. [Suspect]
     Active Substance: CARBOPLATIN
     Indication: LUNG ADENOCARCINOMA STAGE IV
     Dosage: UNK, CYCLIC (IN A CYCLE OF 3 WEEKS FOR 6 CYCLES)
  3. PEMETREXED. [Suspect]
     Active Substance: PEMETREXED
     Indication: LUNG ADENOCARCINOMA STAGE IV
     Dosage: 500 MG/M2, CYCLIC (IN A CYCLE OF 3 WEEKS FOR 6 CYCLES)
  4. PEMETREXED. [Suspect]
     Active Substance: PEMETREXED
     Dosage: 500 MG/M2, CYCLIC (IN A 3 WEEKS CYCLE AS MAINTENANCE)
  5. DOCETAXEL. [Suspect]
     Active Substance: DOCETAXEL
     Indication: LUNG ADENOCARCINOMA STAGE IV
     Dosage: 75 MG/M2, CYCLIC (IN A 3 WEEKS CYCLE)
  6. NINTEDANIB [Suspect]
     Active Substance: NINTEDANIB
     Indication: LUNG ADENOCARCINOMA STAGE IV
     Dosage: 200 MG, DAILY

REACTIONS (3)
  - Neoplasm progression [Unknown]
  - Polymyositis [Unknown]
  - Dermatomyositis [Unknown]
